FAERS Safety Report 6521191-2 (Version None)
Quarter: 2009Q4

REPORT INFORMATION
  Report Type: 
  Country: None (occurrence: None)
  Receive Date: 20091222
  Receipt Date: 20091210
  Transmission Date: 20100525
  Serious: Yes (Hospitalization)
  Sender: FDA-Public Use
  Company Number: 430018J09USA

PATIENT
  Age: 48 Year
  Sex: Female

DRUGS (3)
  1. NOVANTRONE [Suspect]
     Indication: MULTIPLE SCLEROSIS
     Dosage: NOT REPORTED, 1 IN 3 MONTHS, SUBCUTANEOUS
     Route: 058
     Dates: start: 20090721
  2. ZOFRAN [Concomitant]
  3. UNSPECIFIED ANTIFUNGAL CREAM (ANTIFUNGAL) [Concomitant]

REACTIONS (2)
  - ABASIA [None]
  - INTESTINAL OBSTRUCTION [None]
